FAERS Safety Report 5366593-5 (Version None)
Quarter: 2007Q2

REPORT INFORMATION
  Report Type: 
  Country: None (occurrence: None)
  Receive Date: 20070622
  Receipt Date: 20070611
  Transmission Date: 20071010
  Serious: Yes (Other)
  Sender: FDA-Public Use
  Company Number: JP-PFIZER INC-2007048383

PATIENT
  Age: 28 Year
  Sex: Female

DRUGS (5)
  1. METHYLPREDNISOLONE ACETATE SUSPENSION, STERILE [Suspect]
     Indication: LEUKOCYTOCLASTIC VASCULITIS
  2. METHYLPREDNISOLONE ACETATE SUSPENSION, STERILE [Suspect]
     Indication: QUADRIPLEGIA
  3. METHYLPREDNISOLONE ACETATE SUSPENSION, STERILE [Suspect]
     Indication: ENTEROVESICAL FISTULA
  4. CYCLOPHOSPHAMIDE [Concomitant]
  5. ALL OTHER THERAPEUTIC PRODUCTS [Concomitant]

REACTIONS (1)
  - NECROTISING FASCIITIS [None]
